FAERS Safety Report 14578274 (Version 1)
Quarter: 2018Q1

REPORT INFORMATION
  Report Type: Spontaneous
  Country: JP (occurrence: JP)
  Receive Date: 20180227
  Receipt Date: 20180227
  Transmission Date: 20180509
  Serious: Yes (Other)
  Sender: FDA-Public Use
  Company Number: JP-UCBSA-2018007428

PATIENT

DRUGS (1)
  1. VIMPAT [Suspect]
     Active Substance: LACOSAMIDE
     Indication: EPILEPSY
     Dosage: UNK
     Route: 048

REACTIONS (5)
  - Dizziness [Unknown]
  - Somnolence [Unknown]
  - Pruritus [Unknown]
  - Psychiatric symptom [Unknown]
  - Epilepsy [Unknown]
